FAERS Safety Report 5988237-1 (Version None)
Quarter: 2008Q4

REPORT INFORMATION
  Report Type: 
  Country: None (occurrence: None)
  Receive Date: 20081210
  Receipt Date: 20081203
  Transmission Date: 20090506
  Serious: Yes (Hospitalization)
  Sender: FDA-Public Use
  Company Number: JP-JNJFOC-20081004614

PATIENT
  Age: 88 Year
  Sex: Female

DRUGS (5)
  1. ITRIZOLE [Suspect]
     Indication: ONYCHOMYCOSIS
     Dosage: PULSE THERAPY
     Route: 048
  2. SELBEX [Concomitant]
  3. MEVALOTIN [Concomitant]
  4. CONIEL [Concomitant]
  5. EXCELASE [Concomitant]

REACTIONS (4)
  - BLOOD AMYLASE INCREASED [None]
  - DRY MOUTH [None]
  - HYPERGLYCAEMIA [None]
  - OEDEMA [None]
